FAERS Safety Report 9980910 (Version 1)
Quarter: 2014Q1

REPORT INFORMATION
  Report Type: Spontaneous
  Country: GB (occurrence: None)
  Receive Date: 20140305
  Receipt Date: 20140305
  Transmission Date: 20141002
  Serious: Yes (Other)
  Sender: FDA-Public Use
  Company Number: AUR-APL-2014-012151

PATIENT
  Age: 28 Year
  Sex: Male

DRUGS (3)
  1. OLANZAPINE [Suspect]
     Indication: SCHIZOPHRENIA
     Dosage: 1 IN 1 D
     Route: 048
  2. ZYPADHERA [Suspect]
     Indication: SCHIZOPHRENIA
     Route: 030
     Dates: start: 20140203
  3. HALOPERIDOL (HALOPERIDOL) (HALOPERIDOL) [Concomitant]

REACTIONS (9)
  - Post procedural complication [None]
  - Anxiety [None]
  - Chest pain [None]
  - Agitation [None]
  - Sedation [None]
  - Somnolence [None]
  - Tachycardia [None]
  - Injection site haemorrhage [None]
  - Incorrect route of drug administration [None]
